FAERS Safety Report 13456370 (Version 1)
Quarter: 2017Q2

REPORT INFORMATION
  Report Type: Spontaneous
  Country: US (occurrence: US)
  Receive Date: 20170419
  Receipt Date: 20170419
  Transmission Date: 20170830
  Serious: Yes (Other)
  Sender: FDA-Public Use
  Company Number: None

PATIENT
  Age: 63 Year
  Sex: Female
  Weight: 59.88 kg

DRUGS (5)
  1. LIDOCAINE HCL [Suspect]
     Active Substance: LIDOCAINE HYDROCHLORIDE
     Indication: LOCAL ANAESTHESIA
     Dosage: ROUTE OF ADM - INJECTION
     Dates: start: 20170126, end: 20170126
  2. SYSTANE EYEDROPS [Concomitant]
     Active Substance: POLYETHYLENE GLYCOL 400\PROPYLENE GLYCOL
  3. VITAMIN D3 [Concomitant]
     Active Substance: CHOLECALCIFEROL
  4. VENTOLIN [Concomitant]
     Active Substance: ALBUTEROL SULFATE
  5. B-12 INJECTIONS [Concomitant]

REACTIONS (6)
  - Headache [None]
  - Dizziness [None]
  - Nausea [None]
  - Asthenia [None]
  - Somnolence [None]
  - Loss of consciousness [None]

NARRATIVE: CASE EVENT DATE: 20170126
